FAERS Safety Report 23826308 (Version 1)
Quarter: 2024Q2

REPORT INFORMATION
  Report Type: Spontaneous
  Country: US (occurrence: US)
  Receive Date: 20240507
  Receipt Date: 20240507
  Transmission Date: 20240715
  Serious: Yes (Hospitalization)
  Sender: FDA-Public Use
  Company Number: US-DRL-USA-LIT/USA/24/0006725

PATIENT
  Age: 36 Year
  Sex: Male

DRUGS (3)
  1. HEPARIN [Suspect]
     Active Substance: HEPARIN SODIUM
     Indication: Thrombosis
  2. HEPARIN [Suspect]
     Active Substance: HEPARIN SODIUM
     Indication: Cerebral artery embolism
  3. HEPARIN [Suspect]
     Active Substance: HEPARIN SODIUM
     Indication: Pulmonary embolism

REACTIONS (8)
  - Heparin-induced thrombocytopenia [Unknown]
  - Drug ineffective [Unknown]
  - Disease progression [Unknown]
  - Gangrene [Unknown]
  - Renal embolism [Unknown]
  - Splenic embolism [Unknown]
  - Peripheral embolism [Unknown]
  - Cardiogenic shock [Unknown]
